FAERS Safety Report 6614067-3 (Version None)
Quarter: 2010Q1

REPORT INFORMATION
  Report Type: 
  Country: None (occurrence: None)
  Receive Date: 20100304
  Receipt Date: 20100302
  Transmission Date: 20100710
  Serious: Yes (Other)
  Sender: FDA-Public Use
  Company Number: PHEH2009US02479

PATIENT
  Sex: Female

DRUGS (18)
  1. ELIDEL [Suspect]
     Indication: ECZEMA
     Dosage: UNK
     Route: 061
     Dates: start: 20010201
  2. PLAQUENIL [Concomitant]
  3. DESONIDE [Concomitant]
  4. TARGRETIN [Concomitant]
  5. PUVA [Concomitant]
  6. NITROGEN MUSTARD [Concomitant]
  7. TYLENOL-500 [Concomitant]
  8. PSORALENS FOR SYSTEMIC USE [Concomitant]
  9. AVEENO ANTI-ITCH                        /USA/ [Concomitant]
  10. MAGNESIUM [Concomitant]
  11. SYNTHROID [Concomitant]
  12. BACITRACIN [Concomitant]
  13. TRICOR [Concomitant]
  14. BACTRIM [Concomitant]
  15. PHENERGAN ^AVENTIS PHARMA^ [Concomitant]
  16. TRIAMCINOLONE [Concomitant]
  17. HYDROQUINONE [Concomitant]
  18. OXSORALEN [Concomitant]
     Dosage: 10 MG CAPS

REACTIONS (14)
  - ABSCESS DRAINAGE [None]
  - ALOPECIA [None]
  - BACTERIAL DISEASE CARRIER [None]
  - CONTRACEPTION [None]
  - CUTANEOUS LUPUS ERYTHEMATOSUS [None]
  - HYPOVITAMINOSIS [None]
  - INJURY [None]
  - KERATOCONJUNCTIVITIS SICCA [None]
  - LICHENOID KERATOSIS [None]
  - MYCOSIS FUNGOIDES [None]
  - NAUSEA [None]
  - PRURITUS [None]
  - SUBCUTANEOUS ABSCESS [None]
  - T-CELL LYMPHOMA [None]
